FAERS Safety Report 4698487-2 (Version None)
Quarter: 2005Q2

REPORT INFORMATION
  Report Type: 
  Country: None (occurrence: None)
  Receive Date: 20050623
  Receipt Date: 20050518
  Transmission Date: 20051028
  Serious: Yes (Other)
  Sender: FDA-Public Use
  Company Number: CA-NOVOPROD-244286

PATIENT
  Age: 7 Year
  Sex: Male
  Weight: 35 kg

DRUGS (3)
  1. NOVOLIN GE TORONTO [Suspect]
     Indication: DIABETES MELLITUS INSULIN-DEPENDENT
     Dosage: 5-10 IU, QD
     Dates: start: 20030922, end: 20041006
  2. NOVORAPID [Suspect]
     Indication: DIABETES MELLITUS INSULIN-DEPENDENT
     Dosage: 18-30 IU, QD
     Route: 058
     Dates: start: 20041006
  3. NOVOLIN GE NPH [Suspect]
     Indication: DIABETES MELLITUS INSULIN-DEPENDENT
     Dosage: 16 IU, QD
     Dates: start: 20030922, end: 20041006

REACTIONS (3)
  - CONDITION AGGRAVATED [None]
  - INJECTION SITE ATROPHY [None]
  - LIPOATROPHY [None]
